FAERS Safety Report 8012282-8 (Version None)
Quarter: 2011Q4

REPORT INFORMATION
  Report Type: 
  Country: None (occurrence: None)
  Receive Date: 20111228
  Receipt Date: 20111222
  Transmission Date: 20120403
  Serious: Yes (Hospitalization)
  Sender: FDA-Public Use
  Company Number: US-TEVA-315006USA

PATIENT
  Sex: Female

DRUGS (1)
  1. PROAIR HFA [Suspect]

REACTIONS (4)
  - HYPOAESTHESIA [None]
  - HYPERSENSITIVITY [None]
  - VISION BLURRED [None]
  - MENTAL IMPAIRMENT [None]
